FAERS Safety Report 5236630-7 (Version None)
Quarter: 2007Q1

REPORT INFORMATION
  Report Type: 
  Country: None (occurrence: None)
  Receive Date: 20070208
  Receipt Date: 20070126
  Transmission Date: 20070707
  Serious: Yes (Death, Hospitalization)
  Sender: FDA-Public Use
  Company Number: 2007BI001339

PATIENT
  Age: 38 Year
  Sex: Female

DRUGS (6)
  1. NATALIZUMAB [Suspect]
     Indication: MULTIPLE SCLEROSIS
     Dosage: 300 MG; QM; IV
     Route: 042
     Dates: start: 20061214, end: 20061214
  2. METHADONE HCL [Concomitant]
  3. XANAX [Concomitant]
  4. LEXAPRO [Concomitant]
  5. ZANAFLEX [Concomitant]
  6. NEURONTIN [Concomitant]

REACTIONS (6)
  - ACCIDENTAL OVERDOSE [None]
  - COMPLETED SUICIDE [None]
  - MUSCLE SPASMS [None]
  - NO THERAPEUTIC RESPONSE [None]
  - PAIN [None]
  - RESPIRATORY DEPRESSION [None]
